FAERS Safety Report 7138748-0 (Version None)
Quarter: 2010Q4

REPORT INFORMATION
  Report Type: 
  Country: None (occurrence: None)
  Receive Date: 20101122
  Receipt Date: 20101111
  Transmission Date: 20110411
  Serious: Yes (Death, Hospitalization)
  Sender: FDA-Public Use
  Company Number: 2009AC000363

PATIENT
  Age: 10 Year
  Sex: Male

DRUGS (18)
  1. DIGOXIN [Suspect]
     Dosage: (60 MCG; DAILY; PO) (0.125 MG; QD;PO) (PO)
     Route: 048
     Dates: start: 20070609, end: 20070822
  2. DIGOXIN [Suspect]
     Dosage: (60 MCG; DAILY; PO) (0.125 MG; QD;PO) (PO)
     Route: 048
     Dates: start: 19970101
  3. DIGOXIN [Suspect]
     Dosage: (60 MCG; DAILY; PO) (0.125 MG; QD;PO) (PO)
     Route: 048
     Dates: start: 20021010
  4. EPINEPHRINE [Concomitant]
  5. ATROPINE [Concomitant]
  6. VASOPRESSIN [Concomitant]
  7. BICARBONATE [Concomitant]
  8. CALCIUM [Concomitant]
  9. LASIX [Concomitant]
  10. ASPIRIN [Concomitant]
  11. ENALAPRIL [Concomitant]
  12. DESONIDE [Concomitant]
  13. CAPTOPRIL [Concomitant]
  14. COUMADIN [Concomitant]
  15. HEPARIN [Concomitant]
  16. ACE INHIBITOR [Concomitant]
  17. STEROIDS [Concomitant]
  18. DIGITALIS GLYCOSIDES [Concomitant]

REACTIONS (25)
  - ANHEDONIA [None]
  - ATELECTASIS [None]
  - BRADYCARDIA [None]
  - BUNDLE BRANCH BLOCK RIGHT [None]
  - CARDIOMEGALY [None]
  - COAGULOPATHY [None]
  - CRYING [None]
  - DEVELOPMENTAL DELAY [None]
  - ECONOMIC PROBLEM [None]
  - EMOTIONAL DISORDER [None]
  - FACE OEDEMA [None]
  - HYPERKALAEMIA [None]
  - HYPONATRAEMIA [None]
  - HYPOXIA [None]
  - MENTAL DISORDER [None]
  - MULTIPLE INJURIES [None]
  - NO THERAPEUTIC RESPONSE [None]
  - OEDEMA PERIPHERAL [None]
  - PAIN [None]
  - PLEURAL EFFUSION [None]
  - PULMONARY OEDEMA [None]
  - RENAL FAILURE ACUTE [None]
  - SPEECH DISORDER DEVELOPMENTAL [None]
  - THROMBOSIS [None]
  - VOMITING [None]
